FAERS Safety Report 23262601 (Version 1)
Quarter: 2023Q4

REPORT INFORMATION
  Report Type: Spontaneous
  Country: SG (occurrence: SG)
  Receive Date: 20231205
  Receipt Date: 20231205
  Transmission Date: 20240110
  Serious: Yes (Hospitalization)
  Sender: FDA-Public Use
  Company Number: SG-CIPHER-2023-SG-000001

PATIENT
  Age: 60 Year
  Sex: Female

DRUGS (20)
  1. FENOFIBRATE [Suspect]
     Active Substance: FENOFIBRATE
     Indication: Product used for unknown indication
  2. METRONIDAZOLE [Concomitant]
     Active Substance: METRONIDAZOLE
     Indication: Septic shock
     Route: 042
  3. ACTIVATED CHARCOAL [Concomitant]
     Active Substance: ACTIVATED CHARCOAL
     Indication: Product used for unknown indication
  4. 10% calcium gluconate [Concomitant]
     Indication: Product used for unknown indication
  5. GLUCAGON [Concomitant]
     Active Substance: GLUCAGON\GLUCAGON HYDROCHLORIDE\WATER
     Indication: Product used for unknown indication
  6. METHYLENE BLUE [Concomitant]
     Active Substance: METHYLENE BLUE
     Indication: Product used for unknown indication
  7. hyperinsulinemic euglycemic therapy [Concomitant]
     Indication: Product used for unknown indication
     Dosage: 1 U/KG BOLUS, FOLLOWED BY 0.5 U/[KG?H INFUION
  8. UNSPECIFIED INGREDIENT [Concomitant]
     Active Substance: UNSPECIFIED INGREDIENT
     Indication: Product used for unknown indication
  9. lipid emulsion therapy [Concomitant]
     Indication: Product used for unknown indication
  10. CRYOPRECIPITATED ANTIHEMOPHILIC FACTOR (HUMAN) [Concomitant]
     Active Substance: CRYOPRECIPITATED ANTIHEMOPHILIC FACTOR (HUMAN)
     Indication: Disseminated intravascular coagulation
     Dosage: 30 U
  11. PLATELETS [Concomitant]
     Active Substance: HUMAN PLATELET, ALLOGENIC
     Indication: Disseminated intravascular coagulation
  12. BISOPROLOL [Suspect]
     Active Substance: BISOPROLOL\BISOPROLOL FUMARATE
     Indication: Product used for unknown indication
  13. two packed red blood cells [Concomitant]
     Indication: Disseminated intravascular coagulation
  14. AMLODIPINE [Suspect]
     Active Substance: AMLODIPINE BESYLATE
     Indication: Product used for unknown indication
  15. LINAGLIPTIN [Suspect]
     Active Substance: LINAGLIPTIN
     Indication: Product used for unknown indication
  16. METFORMIN [Suspect]
     Active Substance: METFORMIN HYDROCHLORIDE
     Indication: Product used for unknown indication
  17. ATORVASTATIN [Suspect]
     Active Substance: ATORVASTATIN
     Indication: Product used for unknown indication
  18. IRON [Suspect]
     Active Substance: IRON
     Indication: Product used for unknown indication
  19. NOREPINEPHRINE [Concomitant]
     Active Substance: NOREPINEPHRINE
     Indication: Haemodynamic instability
     Route: 042
  20. CEFTRIAXONE [Concomitant]
     Active Substance: CEFTRIAXONE\CEFTRIAXONE SODIUM
     Indication: Septic shock
     Route: 042

REACTIONS (9)
  - Mucosal dryness [Unknown]
  - Septic shock [Unknown]
  - Pancreatitis haemorrhagic [Recovered/Resolved]
  - Disseminated intravascular coagulation [Unknown]
  - Lactic acidosis [Unknown]
  - Vomiting [Unknown]
  - Hypophagia [Unknown]
  - Dizziness [Unknown]
  - Somnolence [Unknown]
